FAERS Safety Report 19861926 (Version 1)
Quarter: 2021Q3

REPORT INFORMATION
  Report Type: Spontaneous
  Country: US (occurrence: US)
  Receive Date: 20210921
  Receipt Date: 20210921
  Transmission Date: 20211014
  Serious: No
  Sender: FDA-Public Use
  Company Number: NVSC2021US213780

PATIENT
  Age: 73 Year
  Sex: Male

DRUGS (3)
  1. VOLTAREN [Suspect]
     Active Substance: DICLOFENAC SODIUM
     Indication: MYALGIA
     Dosage: 150 G
     Route: 065
     Dates: start: 20210911, end: 20210911
  2. VOLTAREN [Interacting]
     Active Substance: DICLOFENAC SODIUM
     Indication: PAIN IN EXTREMITY
     Dosage: UNK
     Route: 065
  3. PLAVIX [Interacting]
     Active Substance: CLOPIDOGREL BISULFATE
     Indication: PRODUCT USED FOR UNKNOWN INDICATION
     Dosage: UNK
     Route: 065

REACTIONS (7)
  - Calcinosis [Unknown]
  - Upper limb fracture [Unknown]
  - Off label use [Unknown]
  - Muscle injury [Unknown]
  - Labelled drug-drug interaction medication error [Unknown]
  - Arthritis [Unknown]
  - Drug effective for unapproved indication [Unknown]
